FAERS Safety Report 11217724 (Version 1)
Quarter: 2015Q2

REPORT INFORMATION
  Report Type: Spontaneous
  Country: US (occurrence: None)
  Receive Date: 20150623
  Receipt Date: 20150623
  Transmission Date: 20150821
  Serious: No
  Sender: FDA-Public Use
  Company Number: SP09641

PATIENT
  Age: 73 Year
  Sex: Female

DRUGS (8)
  1. ZOFRAN [Concomitant]
     Active Substance: ONDANSETRON HYDROCHLORIDE
  2. NORCO [Concomitant]
     Active Substance: ACETAMINOPHEN\HYDROCODONE BITARTRATE
  3. ATIVAN [Concomitant]
     Active Substance: LORAZEPAM
  4. LASIX [Concomitant]
     Active Substance: FUROSEMIDE
  5. SEROQUEL [Concomitant]
     Active Substance: QUETIAPINE FUMARATE
  6. RELISTOR [Suspect]
     Active Substance: METHYLNALTREXONE BROMIDE
     Indication: CONSTIPATION
     Dosage: 12MG/0.6ML EVERY 3 DAYS (1 IN 3 D)
     Route: 058
     Dates: start: 2007
  7. MIRTAZAPINE. [Concomitant]
     Active Substance: MIRTAZAPINE
  8. AMBIEN [Concomitant]
     Active Substance: ZOLPIDEM TARTRATE

REACTIONS (8)
  - Dizziness [None]
  - Constipation [None]
  - Drug ineffective [None]
  - Headache [None]
  - Abdominal pain upper [None]
  - Nausea [None]
  - Abasia [None]
  - Dehydration [None]

NARRATIVE: CASE EVENT DATE: 201505
